FAERS Safety Report 19063270 (Version 6)
Quarter: 2021Q2

REPORT INFORMATION
  Report Type: Report from Study
  Country: SE (occurrence: SE)
  Receive Date: 20210326
  Receipt Date: 20210429
  Transmission Date: 20210717
  Serious: Yes (Hospitalization)
  Sender: FDA-Public Use
  Company Number: SE-ALNYLAM PHARMACEUTICALS, INC.-ALN-2021-000684

PATIENT

DRUGS (33)
  1. SODIUM BICARBONATE. [Concomitant]
     Active Substance: SODIUM BICARBONATE
     Indication: RENAL FAILURE
     Dosage: 2 GRAM, BID
     Route: 048
     Dates: start: 20190301
  2. CANDESARTAN. [Concomitant]
     Active Substance: CANDESARTAN
     Indication: HYPERTENSION
     Dosage: 16 MILLIGRAM, BID
     Route: 048
     Dates: start: 20200128
  3. CLONIDINE. [Concomitant]
     Active Substance: CLONIDINE
     Indication: INFUSION RELATED REACTION
  4. FLAGYL [Concomitant]
     Active Substance: METRONIDAZOLE\METRONIDAZOLE HYDROCHLORIDE
     Indication: GASTROINTESTINAL BACTERIAL OVERGROWTH
     Dosage: 400 MILLIGRAM, PRN
     Route: 048
     Dates: start: 20180914, end: 20210202
  5. BRICANYL [Concomitant]
     Active Substance: TERBUTALINE SULFATE
     Indication: ASTHMA
     Dosage: 1?2 DOSAGE FORM (PUFF), PRN
     Dates: start: 20100422
  6. PARACETAMOL [Concomitant]
     Active Substance: ACETAMINOPHEN
     Dosage: 500 MILLIGRAM, Q3W
     Route: 048
     Dates: start: 20200210, end: 20200818
  7. CETIRIZINE [Concomitant]
     Active Substance: CETIRIZINE HYDROCHLORIDE
     Dosage: 10 MILLIGRAM, Q3W
     Route: 048
     Dates: start: 20200210, end: 20200818
  8. PULMICORT TURBUHALER [Concomitant]
     Active Substance: BUDESONIDE
     Indication: ASTHMA
     Dosage: 2 DOSAGE FORM (PUFF), BID
     Dates: start: 20100422
  9. ZOMIG [Concomitant]
     Active Substance: ZOLMITRIPTAN
     Indication: MIGRAINE
     Dosage: 5 MILLIGRAM, PRN
     Route: 045
     Dates: start: 20190425
  10. VITAMINS [Concomitant]
     Active Substance: VITAMINS
     Indication: VITAMIN SUPPLEMENTATION
     Dosage: 1DOSAGE FORM (TABLET), QD
     Route: 048
     Dates: start: 20200210
  11. PARACETAMOL [Concomitant]
     Active Substance: ACETAMINOPHEN
     Indication: PAIN
     Dosage: 1 GRAM, PRN
     Route: 048
     Dates: start: 20200526
  12. ALN?TTR02 [Suspect]
     Active Substance: PATISIRAN SODIUM
     Indication: HEREDITARY NEUROPATHIC AMYLOIDOSIS
     Dosage: 0.3 MILLIGRAM/KILOGRAM, Q3W
     Route: 042
     Dates: start: 20200210
  13. FAMOTIDINE. [Concomitant]
     Active Substance: FAMOTIDINE
     Indication: PROPHYLAXIS
     Dosage: 40 MILLIGRAM, Q3W
     Route: 048
     Dates: start: 20210112
  14. FAMOTIDINE. [Concomitant]
     Active Substance: FAMOTIDINE
     Dosage: 20 MILLIGRAM, Q3W
     Route: 048
     Dates: start: 20200210, end: 20201222
  15. CLONIDINE. [Concomitant]
     Active Substance: CLONIDINE
     Indication: ANALGESIC THERAPY
     Dosage: 2.5 MILLILITER, PRN
     Route: 048
     Dates: start: 20180719
  16. CETIRIZINE [Concomitant]
     Active Substance: CETIRIZINE HYDROCHLORIDE
     Indication: PROPHYLAXIS
     Dosage: 20 MILLIGRAM
     Route: 048
     Dates: start: 20200908
  17. OMEPRAZOL [Concomitant]
     Active Substance: OMEPRAZOLE
     Indication: ABDOMINAL PAIN
     Dosage: 1 DOSAGE FORM (CAPSULE), QD
     Route: 048
     Dates: start: 20171217
  18. LAXOBERAL [Concomitant]
     Active Substance: SODIUM PICOSULFATE
     Indication: ABDOMINAL PAIN
     Dosage: 10 GTT DROPS, PRN
     Route: 048
     Dates: start: 20160711
  19. IKTORIVIL [Concomitant]
     Active Substance: CLONAZEPAM
     Indication: NEURALGIA
     Dosage: 0.5 MILLIGRAM, QD
     Route: 048
     Dates: start: 20210223
  20. DIVISUN [Concomitant]
     Active Substance: CHOLECALCIFEROL
     Indication: VITAMIN D DEFICIENCY
     Dosage: 1 DOSAGE FORM (TABLET), QD
     Route: 048
     Dates: start: 20171121
  21. BISOPROLOL [Concomitant]
     Active Substance: BISOPROLOL
     Indication: HYPERTENSION
     Dosage: 5 MILLIGRAM, BID
     Route: 048
     Dates: start: 20200128
  22. PARACETAMOL [Concomitant]
     Active Substance: ACETAMINOPHEN
     Indication: PROPHYLAXIS
     Dosage: 1000 MILLIGRAM, Q3W
     Route: 048
     Dates: start: 20200908
  23. BETAMETHASONE. [Concomitant]
     Active Substance: BETAMETHASONE
     Indication: PROPHYLAXIS
     Dosage: 8 MILLIGRAM, Q3W
     Route: 042
     Dates: start: 20200210
  24. LAXOBERAL [Concomitant]
     Active Substance: SODIUM PICOSULFATE
     Indication: CONSTIPATION
  25. CLONIDINE. [Concomitant]
     Active Substance: CLONIDINE
     Indication: CHEST PAIN
  26. FURIX [Concomitant]
     Indication: OEDEMA PERIPHERAL
     Dosage: 40 MILLIGRAM, QD
     Route: 048
     Dates: start: 20210330
  27. FURIX [Concomitant]
     Dosage: 20 MILLIGRAM, QD
     Route: 048
     Dates: start: 20201228, end: 20210330
  28. FURIX [Concomitant]
     Dosage: 20 MILLIGRAM, BID
     Route: 048
     Dates: start: 20201106, end: 20201228
  29. PEPCID [Concomitant]
     Active Substance: FAMOTIDINE
     Indication: ABDOMINAL PAIN
     Dosage: 10 MILLIGRAM, 1?2 TABLET PRN
     Route: 048
     Dates: start: 20201202
  30. DOXYCYCLINE. [Concomitant]
     Active Substance: DOXYCYCLINE
     Indication: GASTROINTESTINAL BACTERIAL OVERGROWTH
     Dosage: 100 MILLIGRAM, 1?2 TABLET PER DAY FOR 5?7 DAYS WHEN NEEDED
     Route: 048
     Dates: start: 20210202
  31. LERKANIDIPIN 2CARE4 [Concomitant]
     Indication: HYPERTENSION
     Dosage: 10 MILLIGRAM, BID
     Route: 048
     Dates: start: 20200128
  32. KALCIPOS?D [Concomitant]
     Active Substance: CALCIUM CARBONATE\CHOLECALCIFEROL
     Indication: VITAMIN D DEFICIENCY
     Dosage: 500/800, MG/IU, BID
     Route: 048
     Dates: start: 20210107
  33. EPLERON [Concomitant]
     Active Substance: EPLERENONE
     Indication: HYPERTENSION
     Dosage: 50 MILLIGRAM, QD
     Route: 048
     Dates: start: 20201222

REACTIONS (1)
  - Infusion site cellulitis [Recovered/Resolved]

NARRATIVE: CASE EVENT DATE: 20210317
